FAERS Safety Report 9728521 (Version 1)
Quarter: 2013Q4

REPORT INFORMATION
  Report Type: Spontaneous
  Country: US (occurrence: None)
  Receive Date: 20131202
  Receipt Date: 20131202
  Transmission Date: 20140711
  Serious: Yes (Hospitalization)
  Sender: FDA-Public Use
  Company Number: 20130668

PATIENT
  Age: 36 Year
  Sex: Female

DRUGS (1)
  1. FERINJECT [Suspect]
     Indication: IRON DEFICIENCY
     Dosage: 500 MG X 2 DOSES, 1000
     Dates: start: 20120213, end: 20130514

REACTIONS (4)
  - Malaise [None]
  - Erythema [None]
  - Rash pruritic [None]
  - Respiratory disorder [None]
